FAERS Safety Report 12336548 (Version 1)
Quarter: 2016Q2

REPORT INFORMATION
  Report Type: Spontaneous
  Country: US (occurrence: None)
  Receive Date: 20160504
  Receipt Date: 20160504
  Transmission Date: 20160815
  Serious: No
  Sender: FDA-Public Use
  Company Number: None

PATIENT
  Sex: Female

DRUGS (3)
  1. HUMIRA [Suspect]
     Active Substance: ADALIMUMAB
  2. PREDNISONE. [Suspect]
     Active Substance: PREDNISONE
  3. ORENCIA [Suspect]
     Active Substance: ABATACEPT

REACTIONS (19)
  - Drug hypersensitivity [None]
  - Patient-device incompatibility [None]
  - Diarrhoea [None]
  - Arthropathy [None]
  - Sinusitis [None]
  - Joint dislocation [None]
  - Soft tissue disorder [None]
  - Aneurysm [None]
  - Injection site bruising [None]
  - Gastritis [None]
  - Drug ineffective [None]
  - Condition aggravated [None]
  - Staphylococcal infection [None]
  - Vomiting [None]
  - Nausea [None]
  - Depression [None]
  - Dysgraphia [None]
  - Oral bacterial infection [None]
  - Abdominal pain upper [None]
